FAERS Safety Report 5078028-0 (Version None)
Quarter: 2006Q3

REPORT INFORMATION
  Report Type: 
  Country: None (occurrence: None)
  Receive Date: 20060811
  Receipt Date: 20060809
  Transmission Date: 20061208
  Serious: Yes (Hospitalization)
  Sender: FDA-Public Use
  Company Number: FR-BAYER-200610759BFR

PATIENT
  Age: 78 Year
  Sex: Male

DRUGS (4)
  1. CIFLOX [Suspect]
     Indication: PROSTATITIS
     Route: 048
     Dates: start: 20051229, end: 20060103
  2. DI ANTALVIC [Suspect]
     Indication: ARTHRALGIA
     Route: 048
     Dates: start: 20051223, end: 20060103
  3. ROCEPHIN [Suspect]
     Indication: PROSTATITIS
     Route: 042
     Dates: start: 20051223, end: 20051229
  4. CELEBREX [Suspect]
     Indication: ARTHRALGIA
     Route: 048
     Dates: start: 20051223, end: 20060103

REACTIONS (3)
  - EOSINOPHILIA [None]
  - RASH ERYTHEMATOUS [None]
  - VASCULAR PURPURA [None]
